FAERS Safety Report 14412141 (Version 1)
Quarter: 2018Q1

REPORT INFORMATION
  Report Type: Spontaneous
  Country: CZ (occurrence: CZ)
  Receive Date: 20180119
  Receipt Date: 20180119
  Transmission Date: 20180509
  Serious: Yes (Death)
  Sender: FDA-Public Use
  Company Number: PHHY2018CZ007425

PATIENT
  Age: 54 Year
  Sex: Male

DRUGS (1)
  1. GENTAMICIN. [Suspect]
     Active Substance: GENTAMICIN
     Indication: BACTERIAL INFECTION
     Route: 042

REACTIONS (6)
  - Vomiting [Fatal]
  - Diarrhoea [Fatal]
  - C-reactive protein increased [Fatal]
  - Bacterial infection [Fatal]
  - Therapy non-responder [Unknown]
  - Condition aggravated [Fatal]
